FAERS Safety Report 16157735 (Version 1)
Quarter: 2019Q2

REPORT INFORMATION
  Report Type: Spontaneous
  Country: US (occurrence: US)
  Receive Date: 20190228
  Receipt Date: 20190228
  Transmission Date: 20190711
  Serious: Yes (Other)
  Sender: FDA-Public Use
  Company Number: None

PATIENT
  Age: 90 Year
  Sex: Male
  Weight: 100 kg

DRUGS (1)
  1. WARFARIN [Suspect]
     Active Substance: WARFARIN
     Indication: DEEP VEIN THROMBOSIS
     Dosage: ?          OTHER FREQUENCY:PM;?
     Route: 048
     Dates: start: 20130308, end: 20130322

REACTIONS (1)
  - Skin necrosis [None]

NARRATIVE: CASE EVENT DATE: 20130322
